FAERS Safety Report 7552125-X (Version None)
Quarter: 2011Q2

REPORT INFORMATION
  Report Type: 
  Country: None (occurrence: None)
  Receive Date: 20110616
  Receipt Date: 20110609
  Transmission Date: 20111010
  Serious: Yes (Death)
  Sender: FDA-Public Use
  Company Number: GB-ABBOTT-11P-167-0726440-00

PATIENT
  Sex: Male
  Weight: 95 kg

DRUGS (1)
  1. HUMIRA [Suspect]
     Indication: RHEUMATOID ARTHRITIS
     Route: 058
     Dates: start: 20041214, end: 20050708

REACTIONS (3)
  - AORTIC ANEURYSM [None]
  - AORTO-DUODENAL FISTULA [None]
  - GASTROINTESTINAL HAEMORRHAGE [None]
